FAERS Safety Report 20223672 (Version 3)
Quarter: 2022Q4

REPORT INFORMATION
  Report Type: Spontaneous
  Country: CA (occurrence: CA)
  Receive Date: 20211223
  Receipt Date: 20221012
  Transmission Date: 20230113
  Serious: Yes (Life-Threatening, Hospitalization, Other)
  Sender: FDA-Public Use
  Company Number: CA-MLMSERVICE-20211209-3262582-1

PATIENT
  Age: 53 Year
  Sex: Female

DRUGS (3)
  1. OXALIPLATIN [Suspect]
     Active Substance: OXALIPLATIN
     Indication: Adenocarcinoma of colon
     Dosage: INTRAVENOUS DRIP
  2. CAPECITABINE [Concomitant]
     Active Substance: CAPECITABINE
     Indication: Adenocarcinoma of colon
  3. BEVACIZUMAB [Concomitant]
     Active Substance: BEVACIZUMAB
     Indication: Adenocarcinoma of colon
     Route: 042

REACTIONS (4)
  - Disseminated intravascular coagulation [Recovered/Resolved]
  - Autoimmune haemolytic anaemia [Recovered/Resolved]
  - Neurogenic shock [Recovered/Resolved]
  - Vomiting [Recovered/Resolved]
